FAERS Safety Report 4839521-6 (Version None)
Quarter: 2005Q4

REPORT INFORMATION
  Report Type: 
  Country: None (occurrence: None)
  Receive Date: 20051129
  Receipt Date: 20051004
  Transmission Date: 20060501
  Serious: Yes (Hospitalization, Other)
  Sender: FDA-Public Use
  Company Number: US-MERCK-0510USA03130

PATIENT
  Age: 53 Year
  Sex: Female
  Weight: 66 kg

DRUGS (11)
  1. VIOXX [Suspect]
     Indication: ARTHRITIS
     Route: 048
     Dates: start: 20001201, end: 20040901
  2. METOCLOPRAMIDE [Concomitant]
     Route: 065
  3. PROTONIX [Concomitant]
     Route: 065
  4. PHENERGAN [Concomitant]
     Route: 065
  5. LEVOXYL [Concomitant]
     Route: 065
  6. ALTACE [Concomitant]
     Route: 065
  7. NORVASC [Concomitant]
     Route: 065
  8. PROZAC [Concomitant]
     Route: 065
  9. XANAX [Concomitant]
     Route: 065
  10. ZYRTEC [Concomitant]
     Route: 065
  11. CRESTOR [Concomitant]
     Route: 065

REACTIONS (4)
  - CEREBROVASCULAR ACCIDENT [None]
  - INJURY CORNEAL [None]
  - MYOCARDIAL INFARCTION [None]
  - TRANSIENT ISCHAEMIC ATTACK [None]
